FAERS Safety Report 9478208 (Version 1)
Quarter: 2013Q3

REPORT INFORMATION
  Report Type: Spontaneous
  Country: SE (occurrence: SE)
  Receive Date: 20130827
  Receipt Date: 20130827
  Transmission Date: 20140515
  Serious: Yes (Life-Threatening, Hospitalization)
  Sender: FDA-Public Use
  Company Number: SE-PFIZER INC-2013246251

PATIENT
  Age: 49 Year
  Sex: Male

DRUGS (3)
  1. EFEXOR DEPOT [Suspect]
     Dosage: 75 MG, 2X/DAY
     Dates: start: 1995, end: 201304
  2. RISPERIDONE [Concomitant]
     Dosage: UNK
  3. MIRTAZAPINE [Concomitant]
     Dosage: UNK

REACTIONS (4)
  - Dyspnoea [Recovered/Resolved with Sequelae]
  - Fatigue [Recovered/Resolved with Sequelae]
  - Cardiac failure [Recovered/Resolved with Sequelae]
  - Pulmonary oedema [Recovered/Resolved with Sequelae]
